FAERS Safety Report 4727706-9 (Version None)
Quarter: 2005Q3

REPORT INFORMATION
  Report Type: 
  Country: None (occurrence: None)
  Receive Date: 20050725
  Receipt Date: 20050429
  Transmission Date: 20060218
  Serious: No
  Sender: FDA-Public Use
  Company Number: USA050597021

PATIENT
  Age: 49 Year
  Sex: Female

DRUGS (7)
  1. STRATTERA [Suspect]
     Dosage: 80 MG DAY
     Dates: start: 20040101
  2. WELLBUTRIN [Concomitant]
  3. LEXAPRO [Concomitant]
  4. TRILEPTAL [Concomitant]
  5. SEROQUEL [Concomitant]
  6. ALTACE (RAMIPRIL DURA) [Concomitant]
  7. HYDROCHLOROTHIAZIDE [Concomitant]

REACTIONS (3)
  - ANXIETY [None]
  - BLOOD PRESSURE INCREASED [None]
  - STOMACH DISCOMFORT [None]
